FAERS Safety Report 17391662 (Version 1)
Quarter: 2020Q1

REPORT INFORMATION
  Report Type: Spontaneous
  Country: US (occurrence: US)
  Receive Date: 20200207
  Receipt Date: 20200207
  Transmission Date: 20200409
  Serious: No
  Sender: FDA-Public Use
  Company Number: US-LUPIN PHARMACEUTICALS INC.-2019-07625

PATIENT
  Age: 38 Year
  Sex: Female

DRUGS (1)
  1. LEVOTHYROXINE. [Suspect]
     Active Substance: LEVOTHYROXINE
     Indication: FOETAL HEART RATE ABNORMAL
     Dosage: 200 MICROGRAM, QD
     Route: 065

REACTIONS (1)
  - Exposure during pregnancy [Unknown]
